FAERS Safety Report 18731911 (Version 2)
Quarter: 2021Q1

REPORT INFORMATION
  Report Type: Spontaneous
  Country: LV (occurrence: LV)
  Receive Date: 20210112
  Receipt Date: 20210304
  Transmission Date: 20210419
  Serious: Yes (Death, Hospitalization, Other)
  Sender: FDA-Public Use
  Company Number: LV-BRISTOL-MYERS SQUIBB COMPANY-BMS-2021-000544

PATIENT
  Age: 69 Year
  Sex: Male

DRUGS (1)
  1. WARFARIN SODIUM. [Suspect]
     Active Substance: WARFARIN SODIUM
     Indication: ATRIAL FIBRILLATION
     Dosage: 25 MILLIGRAM, Q12H
     Route: 065

REACTIONS (13)
  - Creutzfeldt-Jakob disease [Fatal]
  - Hemiparesis [Unknown]
  - Paraneoplastic neurological syndrome [Unknown]
  - Mood altered [Unknown]
  - Vestibular disorder [Unknown]
  - Feeling abnormal [Unknown]
  - Contraindicated product administered [Unknown]
  - Encephalopathy [Unknown]
  - Ataxia [Unknown]
  - Dementia [Unknown]
  - Cognitive disorder [Unknown]
  - Weight decreased [Unknown]
  - Alien limb syndrome [Unknown]

NARRATIVE: CASE EVENT DATE: 2020
